FAERS Safety Report 8991332 (Version 4)
Quarter: 2019Q2

REPORT INFORMATION
  Report Type: Spontaneous
  Country: FI (occurrence: US)
  Receive Date: 20121230
  Receipt Date: 20190412
  Transmission Date: 20190711
  Serious: Yes (Other)
  Sender: FDA-Public Use
  Company Number: US-ALEXION-A201200665

PATIENT
  Age: 35 Year
  Sex: Female

DRUGS (3)
  1. SOLIRIS [Suspect]
     Active Substance: ECULIZUMAB
     Indication: HELLP SYNDROME
     Dosage: 1200 MG, QW
     Route: 042
     Dates: start: 20120331
  2. SOLIRIS [Suspect]
     Active Substance: ECULIZUMAB
     Indication: PRE-ECLAMPSIA
  3. SOLIRIS [Suspect]
     Active Substance: ECULIZUMAB
     Indication: OFF LABEL USE

REACTIONS (8)
  - Premature delivery [Recovered/Resolved]
  - Laboratory test abnormal [Recovered/Resolved]
  - Off label use [Unknown]
  - Pre-eclampsia [Recovered/Resolved]
  - Exposure during pregnancy [Recovered/Resolved]
  - Placental disorder [Recovered/Resolved]
  - Anaemia [Recovered/Resolved]
  - Blood pressure increased [Recovered/Resolved]

NARRATIVE: CASE EVENT DATE: 20110920
